FAERS Safety Report 21599232 (Version 1)
Quarter: 2022Q4

REPORT INFORMATION
  Report Type: Spontaneous
  Country: US (occurrence: None)
  Receive Date: 20221114
  Receipt Date: 20221114
  Transmission Date: 20230113
  Serious: Yes (Hospitalization)
  Sender: FDA-Public Use
  Company Number: None

PATIENT
  Age: 65 Year
  Sex: Male

DRUGS (1)
  1. ENTECAVIR [Suspect]
     Active Substance: ENTECAVIR
     Dosage: OTHER QUANTITY : 0.5MG;?FREQUENCY : DAILY;?
     Route: 048
     Dates: start: 202208

REACTIONS (1)
  - Therapy change [None]

NARRATIVE: CASE EVENT DATE: 20221114
